FAERS Safety Report 17238123 (Version 1)
Quarter: 2020Q1

REPORT INFORMATION
  Report Type: Spontaneous
  Country: US (occurrence: US)
  Receive Date: 20200106
  Receipt Date: 20200106
  Transmission Date: 20200409
  Serious: No
  Sender: FDA-Public Use
  Company Number: US-PACIRA-201900299

PATIENT
  Age: 54 Year
  Sex: Female
  Weight: 130 kg

DRUGS (5)
  1. PROPOFOL. [Concomitant]
     Active Substance: PROPOFOL
     Indication: ANAESTHESIA
     Dosage: UNKNOWN
     Route: 065
     Dates: start: 20190826, end: 20190826
  2. MARCAINE [Suspect]
     Active Substance: BUPIVACAINE HYDROCHLORIDE
     Indication: ABDOMINAL HERNIA REPAIR
     Dosage: 40 ML TOTAL VOLUME OF EXPAREL LIKELY ADMIXED WITH MARCAINE ON A 1:1 RATIO
     Route: 058
     Dates: start: 20190826, end: 20190826
  3. ROCURONIUM [Concomitant]
     Active Substance: ROCURONIUM BROMIDE
     Indication: ANAESTHESIA
     Dosage: UNKNOWN
     Route: 065
     Dates: start: 20190826, end: 20190826
  4. EXPAREL [Suspect]
     Active Substance: BUPIVACAINE
     Indication: ANAESTHESIA
     Dosage: 40 ML TOTAL VOLUME OF EXPAREL LIKELY ADMIXED WITH MARCAINE ON A 1:1 RATIO
     Route: 058
     Dates: start: 20190826, end: 20190826
  5. LIDOCAINE. [Concomitant]
     Active Substance: LIDOCAINE
     Indication: ANAESTHESIA
     Dosage: UNKNOWN
     Route: 065
     Dates: start: 20190826, end: 20190826

REACTIONS (4)
  - Injection site bruising [Recovering/Resolving]
  - Incision site rash [Recovering/Resolving]
  - Pruritus [Recovering/Resolving]
  - Application site erythema [Recovering/Resolving]
